FAERS Safety Report 4991693-9 (Version None)
Quarter: 2006Q2

REPORT INFORMATION
  Report Type: 
  Country: None (occurrence: None)
  Receive Date: 20060504
  Receipt Date: 20050311
  Transmission Date: 20061013
  Serious: Yes (Life-Threatening, Hospitalization, Disabling, Other)
  Sender: FDA-Public Use
  Company Number: US-GLAXOSMITHKLINE-A0549715A

PATIENT
  Age: 45 Year
  Sex: Female
  Weight: 53.2 kg

DRUGS (6)
  1. IMITREX [Suspect]
     Dosage: 100MG AS REQUIRED
     Route: 048
     Dates: start: 20001218, end: 20010301
  2. IMITREX [Suspect]
     Dosage: 6MG AS REQUIRED
     Route: 058
     Dates: start: 20001218, end: 20010301
  3. XANAX [Concomitant]
  4. PREMARIN [Concomitant]
  5. INDERAL [Concomitant]
     Indication: MITRAL VALVE PROLAPSE
     Dosage: 10MG AS REQUIRED
  6. AMBIEN [Concomitant]
     Dosage: 5MG AT NIGHT

REACTIONS (9)
  - ARTERIOSPASM CORONARY [None]
  - BACK PAIN [None]
  - CARDIAC DISORDER [None]
  - CONFUSIONAL STATE [None]
  - HYPERHIDROSIS [None]
  - HYPOGLYCAEMIA [None]
  - MENTAL IMPAIRMENT [None]
  - MYOCARDIAL INFARCTION [None]
  - TREMOR [None]
